FAERS Safety Report 5006048-0 (Version None)
Quarter: 2006Q1

REPORT INFORMATION
  Report Type: 
  Country: None (occurrence: None)
  Receive Date: 20060320
  Receipt Date: 20050718
  Transmission Date: 20060701
  Serious: Yes (Disabling)
  Sender: FDA-Public Use
  Company Number: 2004-09-0878

PATIENT
  Age: 48 Year
  Sex: Female
  Weight: 63.5036 kg

DRUGS (13)
  1. PEG-INTRON [Suspect]
     Indication: HEPATITIS C
     Dosage: SUBCUTANEOUS
     Route: 058
     Dates: start: 20011001, end: 20011201
  2. PEG-INTRON [Suspect]
     Indication: HEPATITIS C
     Dosage: SUBCUTANEOUS
     Route: 058
     Dates: start: 20011001, end: 20021201
  3. PEG-INTRON [Suspect]
     Indication: HEPATITIS C
     Dosage: SUBCUTANEOUS
     Route: 058
     Dates: start: 20021001, end: 20021201
  4. REBETOL [Suspect]
     Indication: HEPATITIS C
     Dosage: ORAL
     Route: 048
     Dates: start: 20011001, end: 20011201
  5. REBETOL [Suspect]
     Indication: HEPATITIS C
     Dosage: ORAL
     Route: 048
     Dates: start: 20011201, end: 20020201
  6. REBETOL [Suspect]
     Indication: HEPATITIS C
     Dosage: ORAL
     Route: 048
     Dates: start: 20021001, end: 20021201
  7. XANAX [Concomitant]
  8. PREVACID [Concomitant]
  9. PROZAC [Concomitant]
  10. MULTIVITAMIN [Concomitant]
  11. CALCIUM GLUCONATE [Concomitant]
  12. NEXIUM [Concomitant]
  13. AMBIEN [Concomitant]

REACTIONS (11)
  - AGEUSIA [None]
  - ANOSMIA [None]
  - COUGH [None]
  - DYSGEUSIA [None]
  - DYSPHONIA [None]
  - FATIGUE [None]
  - GASTROOESOPHAGEAL REFLUX DISEASE [None]
  - NASAL CONGESTION [None]
  - POSTNASAL DRIP [None]
  - RHINITIS [None]
  - SINUSITIS [None]
